FAERS Safety Report 17365702 (Version 1)
Quarter: 2020Q1

REPORT INFORMATION
  Report Type: Spontaneous
  Country: US (occurrence: US)
  Receive Date: 20200204
  Receipt Date: 20200204
  Transmission Date: 20200409
  Serious: Yes (Hospitalization)
  Sender: FDA-Public Use
  Company Number: US-ASTRAZENECA-2020SE15943

PATIENT
  Age: 138 Day
  Sex: Female

DRUGS (2)
  1. SYNAGIS [Suspect]
     Active Substance: PALIVIZUMAB
     Indication: TRANSIENT TACHYPNOEA OF THE NEWBORN
     Route: 030
     Dates: start: 20191112
  2. SYNAGIS [Suspect]
     Active Substance: PALIVIZUMAB
     Indication: TRANSIENT TACHYPNOEA OF THE NEWBORN
     Route: 030
     Dates: start: 20191112

REACTIONS (1)
  - Abdominal discomfort [Unknown]

NARRATIVE: CASE EVENT DATE: 20200119
